FAERS Safety Report 5015600-8 (Version None)
Quarter: 2006Q2

REPORT INFORMATION
  Report Type: 
  Country: None (occurrence: None)
  Receive Date: 20060601
  Receipt Date: 20060522
  Transmission Date: 20061013
  Serious: Yes (Hospitalization)
  Sender: FDA-Public Use
  Company Number: US-JNJFOC-20060505531

PATIENT
  Sex: Female

DRUGS (21)
  1. FENTANYL TRANSDERMAL SYSTEM [Suspect]
     Route: 062
     Dates: start: 20050101
  2. FENTANYL TRANSDERMAL SYSTEM [Suspect]
     Route: 062
     Dates: start: 20050101
  3. XANAX [Concomitant]
     Indication: ANXIETY
     Dosage: EVERY 8 HOURS AS NECESSARY, ORAL
     Route: 048
  4. URISED [Concomitant]
     Route: 048
  5. URISED [Concomitant]
     Route: 048
  6. URISED [Concomitant]
     Route: 048
  7. URISED [Concomitant]
     Route: 048
  8. URISED [Concomitant]
     Route: 048
  9. URISED [Concomitant]
     Route: 048
  10. URISED [Concomitant]
     Indication: BLADDER DISORDER
     Dosage: EVERY 12 HOURS, ORAL
     Route: 048
  11. PREMARIN [Concomitant]
     Indication: HORMONE REPLACEMENT THERAPY
     Route: 048
  12. QUININE SULFATE [Concomitant]
     Dosage: AS NEEDED, ORAL
     Route: 048
  13. CYMBALTA [Concomitant]
     Dosage: AS NECESSARY, ORAL
     Route: 048
  14. RISPERDAL [Concomitant]
     Dosage: AS NECESSARY, ORAL
     Route: 048
  15. CONCERTA [Concomitant]
     Dosage: AS NECESSARY, ORAL
     Route: 048
  16. ATROVENT [Concomitant]
     Indication: ASTHMA
     Dosage: AS NECESSARY, INHALATION
     Route: 055
  17. COMBIVENT [Concomitant]
     Route: 055
  18. COMBIVENT [Concomitant]
     Indication: ASTHMA
     Dosage: AS NECESSARY, INHALATION
     Route: 055
  19. SKELAXIN [Concomitant]
     Dosage: EVERY 12 HOURS, ORAL
     Route: 048
  20. NORVASC [Concomitant]
     Indication: HYPERTENSION
     Dosage: EVERY 24 HOURS, ORAL
     Route: 048
  21. SYNTHROID [Concomitant]
     Dosage: EVERY 24 HOURS, ORAL
     Route: 048

REACTIONS (4)
  - DRUG WITHDRAWAL SYNDROME [None]
  - HYPOGLYCAEMIC COMA [None]
  - PNEUMONIA [None]
  - THERAPEUTIC RESPONSE DECREASED [None]
